FAERS Safety Report 19905001 (Version 1)
Quarter: 2021Q3

REPORT INFORMATION
  Report Type: Report from Study
  Country: US (occurrence: US)
  Receive Date: 20210930
  Receipt Date: 20210930
  Transmission Date: 20211014
  Serious: Yes (Hospitalization)
  Sender: FDA-Public Use
  Company Number: US-TAKEDA-2021TUS040702

PATIENT
  Sex: Female
  Weight: 81.63 kg

DRUGS (24)
  1. VRAYLAR [Concomitant]
     Active Substance: CARIPRAZINE
  2. LITHIUM CARBONATE. [Concomitant]
     Active Substance: LITHIUM CARBONATE
  3. COLCRYS [Concomitant]
     Active Substance: COLCHICINE
  4. ATORVASTATIN [Concomitant]
     Active Substance: ATORVASTATIN
  5. ZYRTEC [Concomitant]
     Active Substance: CETIRIZINE HYDROCHLORIDE
  6. FIORICET [Concomitant]
     Active Substance: ACETAMINOPHEN\BUTALBITAL\CAFFEINE
  7. OMEPRAZOLE. [Concomitant]
     Active Substance: OMEPRAZOLE
  8. NORETHINDRONE. [Concomitant]
     Active Substance: NORETHINDRONE
  9. CYCLOBENZAPRINE. [Concomitant]
     Active Substance: CYCLOBENZAPRINE
  10. XOLAIR [Concomitant]
     Active Substance: OMALIZUMAB
  11. FOLIC ACID. [Concomitant]
     Active Substance: FOLIC ACID
  12. SINGULAIR [Concomitant]
     Active Substance: MONTELUKAST SODIUM
  13. LISINOPRIL. [Concomitant]
     Active Substance: LISINOPRIL
  14. COMBIVENT RESPIMAT [Concomitant]
     Active Substance: ALBUTEROL SULFATE\IPRATROPIUM BROMIDE
  15. HYDROXYZINE [Concomitant]
     Active Substance: HYDROXYZINE HYDROCHLORIDE
  16. LAMICTAL XR [Concomitant]
     Active Substance: LAMOTRIGINE
  17. METFORMIN ER [Concomitant]
     Active Substance: METFORMIN HYDROCHLORIDE
  18. TOPIRAMATE. [Concomitant]
     Active Substance: TOPIRAMATE
  19. BENZTROPINE. [Concomitant]
     Active Substance: BENZTROPINE
  20. IMITREX [Concomitant]
     Active Substance: SUMATRIPTAN SUCCINATE
  21. LISINOPRIL. [Concomitant]
     Active Substance: LISINOPRIL
     Route: 065
  22. HUMAN NORMAL IMMUNOGLOBULIN; LIQUID [Suspect]
     Active Substance: HUMAN IMMUNOGLOBULIN G
     Indication: IMMUNODEFICIENCY COMMON VARIABLE
     Dosage: 20 GRAM, Q3WEEKS
     Route: 042
     Dates: start: 20191008
  23. OXYCODONE [Concomitant]
     Active Substance: OXYCODONE
  24. EPINEPHRINE. [Concomitant]
     Active Substance: EPINEPHRINE

REACTIONS (3)
  - Sinusitis [Unknown]
  - Musculoskeletal discomfort [Unknown]
  - Arthritis [Unknown]
